FAERS Safety Report 8504926-9 (Version None)
Quarter: 2012Q3

REPORT INFORMATION
  Report Type: 
  Country: None (occurrence: None)
  Receive Date: 20120712
  Receipt Date: 20120709
  Transmission Date: 20120928
  Serious: Yes (Other)
  Sender: FDA-Public Use
  Company Number: PHEH2011US00507

PATIENT
  Sex: Female

DRUGS (8)
  1. AUGMENTIN '125' [Concomitant]
  2. ACYCLOVIR [Concomitant]
  3. ZOMETA [Suspect]
     Route: 042
     Dates: end: 20090701
  4. REVLIMID [Concomitant]
  5. CYCLOPHOSPHAMIDE [Concomitant]
  6. FLUCONAZOLE [Concomitant]
  7. METRONIDAZOLE [Concomitant]
  8. CHLORHEXIDINE GLUCONATE [Concomitant]
     Dosage: 1 CAPFUL TWICE DAILY FOR 1 MINUTE

REACTIONS (29)
  - EMOTIONAL DISTRESS [None]
  - GINGIVAL SWELLING [None]
  - MULTIPLE MYELOMA [None]
  - VARICELLA [None]
  - HYPERLIPIDAEMIA [None]
  - GINGIVAL INFECTION [None]
  - HEADACHE [None]
  - BONE PAIN [None]
  - HYPOKALAEMIA [None]
  - GINGIVAL BLEEDING [None]
  - TOOTH ABSCESS [None]
  - THROMBOCYTOPENIA [None]
  - ENTEROCOLITIS INFECTIOUS [None]
  - DIARRHOEA [None]
  - INFECTION [None]
  - DISABILITY [None]
  - DEFORMITY [None]
  - HYPERKERATOSIS [None]
  - OSTEONECROSIS OF JAW [None]
  - INJURY [None]
  - ANAEMIA [None]
  - PARAPROTEINAEMIA [None]
  - LEUKAEMIA [None]
  - HYPONATRAEMIA [None]
  - GASTROOESOPHAGEAL REFLUX DISEASE [None]
  - PAIN [None]
  - SYNCOPE [None]
  - RENAL FAILURE ACUTE [None]
  - NEUROPATHY PERIPHERAL [None]
